FAERS Safety Report 6215043 (Version 2)
Quarter: 2025Q1

REPORT INFORMATION
  Report Type: Spontaneous
  Country: FR (occurrence: FR)
  Receive Date: 20070112
  Receipt Date: 20250310
  Transmission Date: 20250409
  Serious: Yes (Hospitalization, Other)
  Sender: PFIZER
  Company Number: None

PATIENT
  Age: 85 Year
  Sex: Female
  Weight: 150 kg

DRUGS (5)
  1. SOLU-MEDROL [Suspect]
     Active Substance: METHYLPREDNISOLONE SODIUM SUCCINATE
     Dosage: 120 MG, 1X/DAY
     Route: 042
     Dates: end: 20061011
  2. TAXOL [Suspect]
     Active Substance: PACLITAXEL
     Indication: Breast cancer female
     Dosage: 250 MG, 1X/DAY
     Route: 042
     Dates: end: 20061011
  3. RANITIDINE HYDROCHLORIDE [Suspect]
     Active Substance: RANITIDINE HYDROCHLORIDE
     Dosage: 50 MG, 1X/DAY
     Route: 042
     Dates: end: 20061011
  4. POLARAMINE [Suspect]
     Active Substance: DEXCHLORPHENIRAMINE MALEATE
     Dosage: 5 MG, 1X/DAY
     Route: 042
     Dates: end: 20061011
  5. HERCEPTIN [Suspect]
     Active Substance: TRASTUZUMAB
     Indication: Breast cancer female
     Dosage: 800 MG, 1X/DAY
     Route: 042
     Dates: end: 20061011

REACTIONS (5)
  - Cardiac failure [Unknown]
  - Supraventricular extrasystoles [Unknown]
  - Ventricular extrasystoles [Unknown]
  - Acute pulmonary oedema [Unknown]
  - Hypertension [Unknown]

NARRATIVE: CASE EVENT DATE: 20061103
